FAERS Safety Report 4611518-0 (Version None)
Quarter: 2005Q1

REPORT INFORMATION
  Report Type: 
  Country: None (occurrence: None)
  Receive Date: 20050317
  Receipt Date: 20050225
  Transmission Date: 20050727
  Serious: Yes (Other)
  Sender: FDA-Public Use
  Company Number: CA-ROCHE-397168

PATIENT
  Age: 76 Year
  Sex: Male

DRUGS (2)
  1. TAMIFLU [Suspect]
     Indication: PROPHYLAXIS
     Route: 048
     Dates: start: 20050210, end: 20050217
  2. COUMADIN [Concomitant]
     Dosage: THE PATIENT WAS ON WARFARIN 6 MG DAILY ON 10 FEBRUARY 2005 AND 6.5 MG DAILY ON 11 FEBRUARY 2005.
     Route: 048

REACTIONS (1)
  - INTERNATIONAL NORMALISED RATIO INCREASED [None]
